FAERS Safety Report 24104572 (Version 1)
Quarter: 2024Q3

REPORT INFORMATION
  Report Type: Spontaneous
  Country: CH (occurrence: CH)
  Receive Date: 20240717
  Receipt Date: 20240717
  Transmission Date: 20241016
  Serious: Yes (Other)
  Sender: PFIZER
  Company Number: CH-PFIZER INC-202400210134

PATIENT
  Age: 70 Year
  Sex: Female

DRUGS (1)
  1. CARBOPLATIN [Suspect]
     Active Substance: CARBOPLATIN
     Indication: Ovarian cancer
     Dosage: 5 MG/ML/MIN, CYCLIC, THRICE WEEKLY, 30 MIN (5TH CYCLE)
     Route: 042

REACTIONS (1)
  - Papilloedema [Recovered/Resolved with Sequelae]
